FAERS Safety Report 7633015-0 (Version None)
Quarter: 2011Q3

REPORT INFORMATION
  Report Type: 
  Country: None (occurrence: None)
  Receive Date: 20110725
  Receipt Date: 20110723
  Transmission Date: 20111222
  Serious: Yes (Other)
  Sender: FDA-Public Use
  Company Number: US-PFIZER INC-2011167413

PATIENT
  Sex: Male

DRUGS (1)
  1. CHANTIX [Suspect]
     Dosage: UNK
     Dates: start: 20110701

REACTIONS (4)
  - SWELLING FACE [None]
  - EYE SWELLING [None]
  - EYELID OEDEMA [None]
  - ERYTHEMA [None]
